FAERS Safety Report 6311138-6 (Version None)
Quarter: 2009Q3

REPORT INFORMATION
  Report Type: 
  Country: None (occurrence: None)
  Receive Date: 20090817
  Receipt Date: 20090807
  Transmission Date: 20100115
  Serious: Yes (Hospitalization)
  Sender: FDA-Public Use
  Company Number: US-ELI_LILLY_AND_COMPANY-US200904000574

PATIENT
  Sex: Female

DRUGS (16)
  1. FORTEO [Suspect]
     Dosage: UNK, UNK
     Dates: start: 20090315, end: 20090701
  2. TOPROL-XL [Concomitant]
  3. COUMADIN [Concomitant]
     Dosage: 2.5 MG, DAILY (1/D)
  4. SOTALOL HYDROCHLORIDE [Concomitant]
     Dosage: 80 MG, 2/D
  5. LISINOPRIL [Concomitant]
     Dosage: 10 MG, DAILY (1/D)
  6. SYNTHROID [Concomitant]
     Dosage: 125 UG, DAILY (1/D)
  7. RESTASIS [Concomitant]
     Dosage: 0.05 %, DAILY (1/D)
     Route: 047
  8. SERZONE [Concomitant]
     Dosage: 100 MG, DAILY (1/D)
  9. ATROVENT [Concomitant]
     Dosage: 0.06 %, AS NEEDED
     Route: 045
  10. ATROVENT [Concomitant]
     Dosage: 12.9 G, AS NEEDED
     Route: 055
  11. POTASSIUM MAGNESIUM ASPARTATE [Concomitant]
     Dosage: 10 MEQ, DAILY (1/D)
  12. ASTELIN [Concomitant]
     Dosage: 30 ML, 4/D
  13. ZANTAC [Concomitant]
     Dosage: 150 MG, 2/D
  14. CALCIUM [Concomitant]
  15. VITAMIN D [Concomitant]
  16. MAGNESIUM [Concomitant]

REACTIONS (2)
  - ASTHENIA [None]
  - ATRIAL FIBRILLATION [None]
